FAERS Safety Report 9774510 (Version 1)
Quarter: 2013Q4

REPORT INFORMATION
  Report Type: Spontaneous
  Country: US (occurrence: US)
  Receive Date: 20131220
  Receipt Date: 20131220
  Transmission Date: 20140711
  Serious: Yes (Hospitalization, Other)
  Sender: FDA-Public Use
  Company Number: US-BAXTER-2013BAX050567

PATIENT
  Age: 73 Year
  Sex: Female

DRUGS (3)
  1. DIANEAL LOW CALCIUM [Suspect]
     Indication: FLUID RETENTION
     Route: 033
  2. DIANEAL LOW CALCIUM [Suspect]
     Indication: FLUID RETENTION
     Route: 033
  3. GABAPENTIN [Suspect]
     Indication: DIABETES MELLITUS
     Route: 048
     Dates: end: 20131212

REACTIONS (3)
  - Dizziness [Recovering/Resolving]
  - Fall [Recovering/Resolving]
  - Patella fracture [Recovering/Resolving]
